FAERS Safety Report 7814807-1 (Version None)
Quarter: 2011Q4

REPORT INFORMATION
  Report Type: 
  Country: None (occurrence: None)
  Receive Date: 20111013
  Receipt Date: 20111013
  Transmission Date: 20120403
  Serious: No
  Sender: FDA-Public Use
  Company Number: None

PATIENT
  Age: 48 Year
  Sex: Female
  Weight: 88 kg

DRUGS (1)
  1. LISINOPRIL [Suspect]
     Dates: start: 20081101, end: 20110915

REACTIONS (1)
  - ANGIOEDEMA [None]
